FAERS Safety Report 7824001-6 (Version None)
Quarter: 2011Q4

REPORT INFORMATION
  Report Type: 
  Country: None (occurrence: None)
  Receive Date: 20111014
  Receipt Date: 20111003
  Transmission Date: 20120403
  Serious: Yes (Hospitalization)
  Sender: FDA-Public Use
  Company Number: 1000024559

PATIENT
  Age: 61 Year
  Sex: Male
  Weight: 86 kg

DRUGS (4)
  1. EZETROL (EZETIMIBE)(TABLETS) (EZETIMIBE) [Concomitant]
  2. VASOTEC (ENLARPRIL MALEATE) (ENLAPRIL MALEATE) [Concomitant]
  3. LOSEC (OMEPRAZOLE)(OMEPRAZOLE) [Concomitant]
  4. ESCITALOPRAM [Suspect]
     Dosage: 20 MG (10 MG, 2 IN 1 D), ORAL 407D
     Route: 048

REACTIONS (9)
  - SUICIDAL IDEATION [None]
  - CONFUSIONAL STATE [None]
  - BRUXISM [None]
  - MYALGIA [None]
  - DIZZINESS [None]
  - VISUAL IMPAIRMENT [None]
  - INSOMNIA [None]
  - HEADACHE [None]
  - CONVULSION [None]
